FAERS Safety Report 9191722 (Version 1)
Quarter: 2013Q1

REPORT INFORMATION
  Report Type: Spontaneous
  Country: BR (occurrence: BR)
  Receive Date: 20130326
  Receipt Date: 20130326
  Transmission Date: 20140127
  Serious: No
  Sender: FDA-Public Use
  Company Number: BR-ELI_LILLY_AND_COMPANY-BR201303006151

PATIENT
  Age: 57 Year
  Sex: Male
  Weight: 84 kg

DRUGS (4)
  1. CIALIS [Suspect]
     Indication: PROSTATECTOMY
     Dosage: 5 MG, EACH EVENING
     Route: 048
     Dates: start: 20130306, end: 20130312
  2. DICLOFENAC SODIUM [Concomitant]
     Dosage: UNK, EVERY 8 HRS
     Route: 065
     Dates: start: 20130306, end: 20130308
  3. DICLOFENAC SODIUM [Concomitant]
     Dosage: UNK, TID
     Route: 065
     Dates: start: 20130309, end: 20130311
  4. DICLOFENAC SODIUM [Concomitant]
     Dosage: UNK, SINGLE
     Route: 065
     Dates: start: 20130312, end: 20130312

REACTIONS (4)
  - Vision blurred [Recovered/Resolved]
  - Off label use [Unknown]
  - Pain in extremity [Unknown]
  - Back pain [Unknown]
